FAERS Safety Report 24758756 (Version 1)
Quarter: 2024Q4

REPORT INFORMATION
  Report Type: Spontaneous
  Country: US (occurrence: US)
  Receive Date: 20241220
  Receipt Date: 20241220
  Transmission Date: 20250114
  Serious: No
  Sender: BAYER HEALTHCARE LLC
  Company Number: US-BAYER-2024A180158

PATIENT
  Age: 79 Year
  Sex: Female

DRUGS (5)
  1. CLARITIN [Suspect]
     Active Substance: LORATADINE
     Indication: Hypersensitivity
     Route: 048
  2. CLARITIN [Suspect]
     Active Substance: LORATADINE
     Indication: Rhinorrhoea
  3. CLARITIN [Suspect]
     Active Substance: LORATADINE
     Indication: Otorrhoea
  4. CLARITIN [Suspect]
     Active Substance: LORATADINE
     Indication: Eye swelling
  5. CLARITIN [Suspect]
     Active Substance: LORATADINE
     Indication: Nasopharyngitis

REACTIONS (1)
  - Drug effective for unapproved indication [Unknown]
